FAERS Safety Report 7336700-3 (Version None)
Quarter: 2011Q1

REPORT INFORMATION
  Report Type: 
  Country: None (occurrence: None)
  Receive Date: 20110308
  Receipt Date: 20110228
  Transmission Date: 20110831
  Serious: Yes (Hospitalization)
  Sender: FDA-Public Use
  Company Number: US-BIOGENIDEC-2009BI003196

PATIENT
  Sex: Female

DRUGS (2)
  1. AVONEX [Suspect]
     Route: 030
     Dates: start: 19980901, end: 20071101
  2. AVONEX [Suspect]
     Indication: MULTIPLE SCLEROSIS
     Route: 030
     Dates: start: 20080319

REACTIONS (10)
  - CEREBROVASCULAR ACCIDENT [None]
  - ARTHRALGIA [None]
  - MYOCARDIAL INFARCTION [None]
  - TRAUMATIC LIVER INJURY [None]
  - TOOTH INJURY [None]
  - DEPRESSION [None]
  - BLOOD CHOLESTEROL INCREASED [None]
  - HYPERTENSION [None]
  - ROAD TRAFFIC ACCIDENT [None]
  - RIB FRACTURE [None]
